FAERS Safety Report 10510732 (Version 3)
Quarter: 2016Q2

REPORT INFORMATION
  Report Type: Other
  Country: GB (occurrence: GB)
  Receive Date: 20141010
  Receipt Date: 20160503
  Transmission Date: 20160815
  Serious: Yes (Life-Threatening, Hospitalization)
  Sender: FDA-Public Use
  Company Number: GB-LUPIN PHARMACEUTICALS INC.-E2B_00002493

PATIENT
  Age: 29 Year
  Sex: Male
  Weight: 90 kg

DRUGS (3)
  1. OMEPRAZOLE. [Concomitant]
     Active Substance: OMEPRAZOLE
     Indication: PRODUCT USED FOR UNKNOWN INDICATION
     Dosage: UNTIL EARLY/MID JULY.
     Route: 065
     Dates: end: 201407
  2. QUETIAPINE. [Suspect]
     Active Substance: QUETIAPINE
     Indication: SCHIZOPHRENIA
     Route: 048
     Dates: start: 20140308, end: 20140827
  3. PARACETAMOL [Concomitant]
     Active Substance: ACETAMINOPHEN
     Indication: PRODUCT USED FOR UNKNOWN INDICATION
     Dosage: 0.5-1G AS NECESSARY/ FOUR TIMES DAILY (PRN/QDS)
     Route: 065

REACTIONS (8)
  - Leukocytosis [Recovered/Resolved]
  - Joint stiffness [Recovered/Resolved]
  - Torticollis [Recovered/Resolved]
  - Hyperhidrosis [Recovered/Resolved]
  - Dystonia [Recovered/Resolved]
  - Swollen tongue [Recovered/Resolved]
  - Liver function test abnormal [Recovered/Resolved]
  - Neuroleptic malignant syndrome [Recovered/Resolved]

NARRATIVE: CASE EVENT DATE: 20140313
